FAERS Safety Report 6766241-3 (Version None)
Quarter: 2010Q2

REPORT INFORMATION
  Report Type: 
  Country: None (occurrence: None)
  Receive Date: 20100609
  Receipt Date: 20100525
  Transmission Date: 20101027
  Serious: Yes (Hospitalization)
  Sender: FDA-Public Use
  Company Number: BE-DEXPHARM-20100744

PATIENT
  Age: 13 Year
  Sex: Male

DRUGS (15)
  1. OMEPRAZOLE [Suspect]
     Indication: PROPHYLAXIS
     Dosage: 20 MG MILLIGRAM(S) SEP. DOSAGES / INTERVAL: 1 IN 1 DAY ORAL
     Route: 048
     Dates: start: 20080620
  2. DEXAMETHASONE [Suspect]
     Indication: ACUTE LYMPHOCYTIC LEUKAEMIA
     Dosage: DOSAGE TEST: PROTOCOL IIA; DOSE: 6MG/M2 MILLIGRAM(S) SQ. METER SEP. DOSAGES/INTERVAL; 1 IN 1 DAY
     Dates: start: 20080602
  3. CYCLOPHOSPHAMIDE [Suspect]
     Indication: ACUTE LYMPHOCYTIC LEUKAEMIA
     Dosage: ON DAY 1 OF THE PROTOCOL OTHERWISE SPECIFIED) IIB; 1000 MG/M2 MILLIGRAM(S) SQ. METER
     Dates: start: 20080714, end: 20080714
  4. CYTARABINE [Suspect]
     Indication: ACUTE LYMPHOCYTIC LEUKAEMIA
     Dosage: ON DAYS 3-6 OF THE PROTOCOL IIB; 75 MG/M2 MILLIGRAM(S) SQ. METER SEP. DOSAGES/INTERVAL: 1 IN 1 DAY
     Route: 042
     Dates: start: 20080716, end: 20080719
  5. CYTARABINE [Suspect]
     Indication: ACUTE LYMPHOCYTIC LEUKAEMIA
     Dosage: SEE IMAGE
     Route: 042
     Dates: start: 20080723, end: 20080726
  6. METHOTREXATE [Suspect]
     Indication: ACUTE LYMPHOCYTIC LEUKAEMIA
     Dosage: ON DAY 3 OF PROTOCOL IIB 12 MG MILLIGRAM(S) INTRATHECAL
     Route: 037
     Dates: start: 20080716, end: 20080716
  7. METHYLPREDNISOLONE [Suspect]
     Indication: ACUTE LYMPHOCYTIC LEUKAEMIA
     Dosage: ON DAY 3 OF PROTOCOL IIB 3 MG MILLIGRAM(S) INTRATHECAL
     Route: 037
     Dates: start: 20080716, end: 20080716
  8. SULFAMETHOXAZOLE AND TRIMETHOPRIM [Suspect]
     Dosage: 400 MG MILLIGRAM(S) SEP. DOSAGES/INTERVAL: 2 IN 1 DAY ORAL
     Route: 048
     Dates: start: 20080603
  9. ADRIAMYCIN PFS [Concomitant]
  10. CYTARABINE [Concomitant]
  11. ELSPAR [Concomitant]
  12. MESNA [Concomitant]
  13. ONDANSETRON [Concomitant]
  14. THIOGUANINE [Concomitant]
  15. VINCRISTINE [Concomitant]

REACTIONS (14)
  - DYSARTHRIA [None]
  - FACIAL PARESIS [None]
  - HAEMOGLOBIN DECREASED [None]
  - HAEMORRHAGE [None]
  - HEMIPARESIS [None]
  - MIGRAINE [None]
  - NERVOUS SYSTEM DISORDER [None]
  - OESOPHAGEAL DISORDER [None]
  - PARAESTHESIA ORAL [None]
  - PLATELET COUNT DECREASED [None]
  - STOMATITIS [None]
  - SWELLING FACE [None]
  - TRANSIENT ISCHAEMIC ATTACK [None]
  - VASCULITIS [None]
